FAERS Safety Report 17391631 (Version 1)
Quarter: 2020Q1

REPORT INFORMATION
  Report Type: Spontaneous
  Country: SE (occurrence: SE)
  Receive Date: 20200207
  Receipt Date: 20200207
  Transmission Date: 20200409
  Serious: Yes (Hospitalization)
  Sender: FDA-Public Use
  Company Number: SE-TEVA-2020-SE-1182430

PATIENT
  Age: 78 Year
  Sex: Female

DRUGS (14)
  1. SAROTEN 10 MG FILMDRAGERAD TABLETT [Suspect]
     Active Substance: AMITRIPTYLINE HYDROCHLORIDE
     Indication: SLEEP DISORDER
     Dosage: 10 MG
     Dates: end: 20200113
  2. ATORVASTATIN [Concomitant]
     Active Substance: ATORVASTATIN
     Dosage: 20 MG
  3. AMLODIPINE [Suspect]
     Active Substance: AMLODIPINE BESYLATE
     Indication: HYPERTENSION
     Dosage: 5 MG
     Dates: start: 20171013, end: 20200113
  4. INOLAXOL [Concomitant]
     Active Substance: HERBALS\KARAYA GUM
     Dosage: 1 DOSAGE FORMS DAILY; 1 SACHET ONCE DAILY
  5. METFORMIN [Concomitant]
     Active Substance: METFORMIN HYDROCHLORIDE
     Dosage: 1+0+0+0  (500 MG)
  6. LOSARTAN/HYDROKLORTIAZID [Concomitant]
     Active Substance: HYDROCHLOROTHIAZIDE\LOSARTAN
     Dosage: 1 DF
  7. TROMBYL [Concomitant]
     Active Substance: ASPIRIN
     Dosage: 75 MG
  8. ZOLPIDEM STADA [Concomitant]
     Active Substance: ZOLPIDEM TARTRATE
     Dosage: 1 IF NECESSARY (5 MG)
  9. CAPSINA [Concomitant]
     Dosage: 1 APPLICATION X 3-4 IF NEEDED
  10. LACTULOSE. [Concomitant]
     Active Substance: LACTULOSE
     Dosage: 20 ML
  11. ZOPICLONE [Concomitant]
     Active Substance: ZOPICLONE
     Dosage: 1 IF NECESSARY (5 MG)
  12. METOPROLOL. [Concomitant]
     Active Substance: METOPROLOL
     Dosage: 25 MG
  13. DIMOR 2 MG FILMDRAGERAD TABLETT [Concomitant]
     Active Substance: LOPERAMIDE HYDROCHLORIDE
     Dosage: 1-2 TABLETS IF NEEDED
  14. KALCIPOS-D FORTE [Concomitant]
     Active Substance: CALCIUM CARBONATE\CHOLECALCIFEROL
     Dosage: 1 DF

REACTIONS (2)
  - Syncope [Recovered/Resolved]
  - Orthostatic hypotension [Recovered/Resolved]

NARRATIVE: CASE EVENT DATE: 20200112
